FAERS Safety Report 9276354 (Version 1)
Quarter: 2013Q2

REPORT INFORMATION
  Report Type: Spontaneous
  Country: US (occurrence: None)
  Receive Date: 20130502
  Receipt Date: 20130502
  Transmission Date: 20140414
  Serious: Yes (Other)
  Sender: FDA-Public Use
  Company Number: None

PATIENT
  Age: 55 Year
  Sex: Male

DRUGS (1)
  1. HYDROXYUREA [Suspect]
     Indication: PSORIASIS
     Route: 048
     Dates: start: 20120601, end: 20120607

REACTIONS (2)
  - Neuropathy peripheral [None]
  - Pain in extremity [None]
